FAERS Safety Report 11127926 (Version 1)
Quarter: 2015Q2

REPORT INFORMATION
  Report Type: Spontaneous
  Country: JP (occurrence: JP)
  Receive Date: 20150521
  Receipt Date: 20150521
  Transmission Date: 20150821
  Serious: Yes (Death)
  Sender: FDA-Public Use
  Company Number: JP-MYLANLABS-2015M1016674

PATIENT

DRUGS (4)
  1. LIDOCAINE. [Concomitant]
     Active Substance: LIDOCAINE
     Dosage: 20ML (CONC. 1%)
     Route: 050
  2. ROPIVACAINE [Suspect]
     Active Substance: ROPIVACAINE
     Indication: EPIDURAL ANAESTHESIA
     Dosage: 18ML (CONC. 0.375%)
     Route: 008
  3. FENTANYL. [Suspect]
     Active Substance: FENTANYL
     Indication: OFF LABEL USE
     Dosage: 0.025 MG, UNK
     Route: 042
  4. FENTANYL. [Suspect]
     Active Substance: FENTANYL
     Indication: EPIDURAL ANAESTHESIA
     Dosage: 0.1MG
     Route: 008

REACTIONS (2)
  - Chronic respiratory failure [Fatal]
  - Respiratory depression [Fatal]
